FAERS Safety Report 10080614 (Version 1)
Quarter: 2014Q2

REPORT INFORMATION
  Report Type: Spontaneous
  Country: GB (occurrence: None)
  Receive Date: 20140414
  Receipt Date: 20140414
  Transmission Date: 20141212
  Serious: Yes (Hospitalization, Congenital Anomaly, Other)
  Sender: FDA-Public Use
  Company Number: CL-559-2014

PATIENT
  Age: 3 Day
  Sex: Female
  Weight: 2.3 kg

DRUGS (1)
  1. HALOPERIDOL [Suspect]
     Indication: PSYCHOTIC DISORDER

REACTIONS (8)
  - Nephrogenic diabetes insipidus [None]
  - Feeding disorder neonatal [None]
  - Dehydration [None]
  - Weight decreased [None]
  - Haemoconcentration [None]
  - Drug withdrawal syndrome neonatal [None]
  - Maternal drugs affecting foetus [None]
  - Exposure during breast feeding [None]
